FAERS Safety Report 4858559-6 (Version None)
Quarter: 2005Q4

REPORT INFORMATION
  Report Type: 
  Country: None (occurrence: None)
  Receive Date: 20051219
  Receipt Date: 20051003
  Transmission Date: 20060501
  Serious: No
  Sender: FDA-Public Use
  Company Number: US-GLAXOSMITHKLINE-A0576807A

PATIENT
  Sex: Female

DRUGS (2)
  1. NICODERM CQ [Suspect]
     Dates: start: 20050926, end: 20050928
  2. NICODERM 21MG (RX) [Suspect]

REACTIONS (5)
  - APPLICATION SITE URTICARIA [None]
  - BLISTER [None]
  - HEADACHE [None]
  - NICOTINE DEPENDENCE [None]
  - SKIN EXFOLIATION [None]
